FAERS Safety Report 15743361 (Version 2)
Quarter: 2019Q2

REPORT INFORMATION
  Report Type: Spontaneous
  Country: PT (occurrence: PT)
  Receive Date: 20181220
  Receipt Date: 20190621
  Transmission Date: 20190711
  Serious: Yes (Other)
  Sender: FDA-Public Use
  Company Number: PT-AUROBINDO-AUR-APL-2018-060694

PATIENT

DRUGS (15)
  1. FUCIDINE [Concomitant]
     Indication: ONYCHOLYSIS
     Dosage: UNK
     Route: 065
     Dates: start: 20181026, end: 20181215
  2. CLEMASTINE [Concomitant]
     Active Substance: CLEMASTINE
     Indication: PRODUCT USED FOR UNKNOWN INDICATION
     Dosage: UNK
     Route: 065
     Dates: start: 20180605
  3. METOCLOPRAMIDE. [Concomitant]
     Active Substance: METOCLOPRAMIDE
     Indication: PRODUCT USED FOR UNKNOWN INDICATION
     Dosage: UNK
     Route: 065
     Dates: start: 20180612
  4. TRASTUZUMAB. [Suspect]
     Active Substance: TRASTUZUMAB
     Indication: HER-2 POSITIVE BREAST CANCER
     Dosage: 530 MILLIGRAM, EVERY 3 WEEKS
     Route: 042
  5. FLUCLOXACILLIN [Concomitant]
     Active Substance: FLUCLOXACILLIN
     Indication: ONYCHOLYSIS
     Dosage: UNK
     Route: 065
     Dates: start: 20181026, end: 20181115
  6. PACLITAXEL CONCENTRATE FOR SOLUTION FOR INFUSION [Suspect]
     Active Substance: PACLITAXEL
     Indication: HER-2 POSITIVE BREAST CANCER
     Dosage: 140 MILLIGRAM, EVERY WEEK
     Route: 042
     Dates: start: 20180605
  7. ZOLEDRONIC ACID [Suspect]
     Active Substance: ZOLEDRONIC ACID
     Indication: INVASIVE DUCTAL BREAST CARCINOMA
     Dosage: UNK
     Route: 065
     Dates: start: 20150803
  8. ONDANSETRON [Concomitant]
     Active Substance: ONDANSETRON
     Indication: PRODUCT USED FOR UNKNOWN INDICATION
     Dosage: UNK
     Route: 065
     Dates: start: 20180605
  9. PERTUZUMAB. [Suspect]
     Active Substance: PERTUZUMAB
     Indication: HER-2 POSITIVE BREAST CANCER
     Dosage: 840 MILLIGRAM, EVERY 3 WEEKS
     Route: 042
  10. DEXAMETHASONE. [Concomitant]
     Active Substance: DEXAMETHASONE
     Indication: PRODUCT USED FOR UNKNOWN INDICATION
     Dosage: UNK
     Route: 065
     Dates: start: 20180605
  11. ONDANSETRON [Concomitant]
     Active Substance: ONDANSETRON
     Dosage: UNK
     Route: 065
     Dates: start: 20180612
  12. PACLITAXEL CONCENTRATE FOR SOLUTION FOR INFUSION [Suspect]
     Active Substance: PACLITAXEL
     Indication: INVASIVE DUCTAL BREAST CARCINOMA
     Dosage: 80 MILLIGRAM/SQ. METER, EVERY WEEK
     Route: 065
     Dates: start: 20150803
  13. RANITIDINE. [Concomitant]
     Active Substance: RANITIDINE
     Indication: PRODUCT USED FOR UNKNOWN INDICATION
     Dosage: UNK
     Route: 065
     Dates: start: 20180605
  14. FOLIFER [Concomitant]
     Indication: PRODUCT USED FOR UNKNOWN INDICATION
     Dosage: UNK
     Route: 065
  15. PARACETAMOL [Concomitant]
     Active Substance: ACETAMINOPHEN
     Indication: ONYCHOLYSIS
     Dosage: UNK
     Route: 065
     Dates: start: 20181026, end: 20181215

REACTIONS (2)
  - Neuropathy peripheral [Unknown]
  - Onycholysis [Recovered/Resolved]

NARRATIVE: CASE EVENT DATE: 20181030
